FAERS Safety Report 8571570-7 (Version None)
Quarter: 2012Q3

REPORT INFORMATION
  Report Type: 
  Country: None (occurrence: None)
  Receive Date: 20120806
  Receipt Date: 20120724
  Transmission Date: 20120928
  Serious: Yes (Death, Life-Threatening, Other)
  Sender: FDA-Public Use
  Company Number: JP-MPIJNJ-2012-03083

PATIENT

DRUGS (21)
  1. LOSARTAN POTASSIUM [Concomitant]
     Indication: RENAL FAILURE
     Dosage: 50 MG, QD
     Route: 048
     Dates: start: 20120106, end: 20120416
  2. FUROSEMIDE [Concomitant]
     Indication: CARDIAC FAILURE
     Dosage: 40 MG, UNK
     Route: 048
     Dates: start: 20120106, end: 20120416
  3. AZOSEMIDE [Concomitant]
     Indication: CARDIAC FAILURE
  4. PURSENNID                          /00142207/ [Concomitant]
     Dosage: 12 MG, UNK
     Route: 048
     Dates: start: 20120111
  5. ZYVOX [Concomitant]
     Indication: STAPHYLOCOCCAL SEPSIS
     Dosage: 60 MG, BID
     Route: 048
     Dates: start: 20120402, end: 20120416
  6. AMIODARONE HCL [Concomitant]
     Indication: CARDIAC AMYLOIDOSIS
     Dosage: 200 MG, QD
     Route: 048
     Dates: start: 20020201, end: 20120416
  7. DAIKENCHUTO [Concomitant]
     Dosage: 7.5 G, QD
     Route: 048
     Dates: start: 20120228, end: 20120410
  8. HUMAN ALBUMIN                      /01102501/ [Concomitant]
     Indication: RENAL FAILURE ACUTE
     Dosage: 25 G, QD
     Route: 042
     Dates: start: 20120223, end: 20120226
  9. AZOSEMIDE [Concomitant]
     Indication: RENAL FAILURE
     Dosage: 50 MG, UNK
     Route: 048
     Dates: start: 20020103, end: 20120416
  10. SENNOSIDE                          /00571902/ [Concomitant]
     Indication: CONSTIPATION
     Dosage: 12 MG, UNK
     Route: 048
     Dates: start: 20120111, end: 20120416
  11. VELCADE [Suspect]
     Indication: MULTIPLE MYELOMA
     Dosage: 1.3 MG/M2, UNK
     Route: 042
     Dates: start: 20120316, end: 20120412
  12. EPLERENONE [Concomitant]
     Indication: CARDIAC FAILURE
     Dosage: 50 MG, UNK
     Route: 048
     Dates: start: 20120218, end: 20120416
  13. VALACICLOVIR [Concomitant]
     Indication: MULTIPLE MYELOMA
     Dosage: 500 MG, QD
     Route: 048
     Dates: start: 20120314, end: 20120416
  14. OMEPRAZOLE [Concomitant]
     Indication: GASTRIC ULCER
     Dosage: 20 MG, QD
     Route: 048
     Dates: start: 20120323, end: 20120416
  15. DOPAMINE HCL [Concomitant]
     Indication: STAPHYLOCOCCAL SEPSIS
     Dosage: 225 MG, QD
     Dates: start: 20120401, end: 20120502
  16. VELCADE [Suspect]
     Indication: CARDIAC AMYLOIDOSIS
  17. VELCADE [Suspect]
     Indication: RENAL AMYLOIDOSIS
  18. DEXAMETHASONE [Concomitant]
     Indication: MULTIPLE MYELOMA
     Dosage: 20 MG, UNK
     Route: 048
     Dates: start: 20120314, end: 20120413
  19. ARTIST [Concomitant]
     Indication: CARDIAC FAILURE
     Dosage: 2.5 G, QD
     Route: 048
     Dates: start: 20120116, end: 20120416
  20. TRICHLORMETHIAZIDE [Concomitant]
     Indication: CARDIAC FAILURE
     Dosage: 1 MG, QD
     Route: 048
     Dates: start: 20120221, end: 20120416
  21. TOLVAPTAN [Concomitant]
     Indication: CARDIAC FAILURE
     Dosage: 7.5 MG, QD
     Route: 048
     Dates: start: 20120223, end: 20120416

REACTIONS (8)
  - CARDIAC AMYLOIDOSIS [None]
  - LIVER DISORDER [None]
  - SEPTIC SHOCK [None]
  - CHEYNE-STOKES RESPIRATION [None]
  - DEPRESSED LEVEL OF CONSCIOUSNESS [None]
  - STAPHYLOCOCCAL SEPSIS [None]
  - PLATELET COUNT DECREASED [None]
  - CARDIAC FAILURE [None]
